FAERS Safety Report 25364616 (Version 2)
Quarter: 2025Q2

REPORT INFORMATION
  Report Type: Spontaneous
  Country: AE (occurrence: AE)
  Receive Date: 20250527
  Receipt Date: 20250530
  Transmission Date: 20250717
  Serious: Yes (Disabling, Other)
  Sender: PFIZER
  Company Number: AE-PFIZER INC-PV202500062352

PATIENT
  Age: 33 Year
  Sex: Male

DRUGS (2)
  1. SULFASALAZINE [Suspect]
     Active Substance: SULFASALAZINE
     Indication: Colitis ulcerative
  2. SULFASALAZINE [Suspect]
     Active Substance: SULFASALAZINE
     Indication: Arthritis enteropathic

REACTIONS (1)
  - Deafness [Recovered/Resolved]
